FAERS Safety Report 18026051 (Version 2)
Quarter: 2020Q3

REPORT INFORMATION
  Report Type: Report from Study
  Country: CA (occurrence: CA)
  Receive Date: 20200715
  Receipt Date: 20200724
  Transmission Date: 20201103
  Serious: Yes (Other)
  Sender: FDA-Public Use
  Company Number: CA-EMD SERONO-9174408

PATIENT
  Sex: Male

DRUGS (2)
  1. MAVENCLAD [Suspect]
     Active Substance: CLADRIBINE
     Indication: MULTIPLE SCLEROSIS
     Dosage: FIRST WEEK THERAPY.
     Route: 048
     Dates: start: 20181201
  2. MAVENCLAD [Suspect]
     Active Substance: CLADRIBINE
     Dosage: FIFTH WEEK THERAPY: 20 MG ON DAYS 1 AND 2 AND 10 MG ON DAYS 3 TO 5.
     Route: 048
     Dates: start: 20181220, end: 20181224

REACTIONS (4)
  - Suicidal ideation [Not Recovered/Not Resolved]
  - Confusional state [Not Recovered/Not Resolved]
  - Vision blurred [Not Recovered/Not Resolved]
  - Gait disturbance [Not Recovered/Not Resolved]
